FAERS Safety Report 18997355 (Version 1)
Quarter: 2021Q1

REPORT INFORMATION
  Report Type: Spontaneous
  Country: DK (occurrence: DK)
  Receive Date: 20210311
  Receipt Date: 20210311
  Transmission Date: 20210420
  Serious: Yes (Hospitalization)
  Sender: FDA-Public Use
  Company Number: DK-STRIDES ARCOLAB LIMITED-2021SP002890

PATIENT
  Age: 6 Year
  Sex: Female

DRUGS (5)
  1. SOLIFENACIN [Concomitant]
     Active Substance: SOLIFENACIN
     Indication: PROPHYLAXIS URINARY TRACT INFECTION
     Dosage: UNK
     Route: 065
  2. METHYLPREDNISOLONE. [Suspect]
     Active Substance: METHYLPREDNISOLONE
     Indication: PULMONARY FIBROSIS
     Dosage: 35 MILLIGRAM/KILOGRAM
     Route: 042
  3. NITROFURANTOIN. [Concomitant]
     Active Substance: NITROFURANTOIN
     Indication: PROPHYLAXIS URINARY TRACT INFECTION
     Dosage: 25 MILLIGRAM DAILY
     Route: 048
  4. PREDNISOLONE. [Suspect]
     Active Substance: PREDNISOLONE
     Dosage: UNK, TAPERED OFF
     Route: 065
  5. PREDNISOLONE. [Suspect]
     Active Substance: PREDNISOLONE
     Indication: PULMONARY FIBROSIS
     Dosage: 20 MILLIGRAM/KILOGRAM, BID
     Route: 065

REACTIONS (3)
  - Steroid withdrawal syndrome [Unknown]
  - Adrenal insufficiency [Unknown]
  - Pneumocystis jirovecii infection [Recovered/Resolved]
